FAERS Safety Report 5745043-0 (Version None)
Quarter: 2008Q2

REPORT INFORMATION
  Report Type: 
  Country: None (occurrence: None)
  Receive Date: 20080521
  Receipt Date: 20080516
  Transmission Date: 20081010
  Serious: Yes (Death, Hospitalization)
  Sender: FDA-Public Use
  Company Number: DK-BAYER-200818508GPV

PATIENT
  Age: 62 Year
  Sex: Male

DRUGS (6)
  1. CIPROFLOXACIN HCL [Suspect]
     Indication: SEPSIS
     Route: 042
     Dates: start: 20080421, end: 20080425
  2. METRONIDAZOLE [Suspect]
     Indication: SEPSIS
     Route: 042
     Dates: start: 20080421, end: 20080424
  3. LAMICTAL [Suspect]
     Indication: MUSCLE SPASMS
     Dosage: UNIT DOSE: 100 MG
     Route: 048
     Dates: start: 20080201, end: 20080425
  4. MERONEM [Suspect]
     Indication: SEPSIS
     Route: 042
     Dates: start: 20080421, end: 20080425
  5. DIFLUCAN [Suspect]
     Indication: SEPSIS
     Route: 042
     Dates: start: 20080421, end: 20080425
  6. INNOHEP [Concomitant]
     Indication: THROMBOSIS PROPHYLAXIS
     Dosage: UNIT DOSE: 3500 IU
     Route: 058
     Dates: start: 20080421, end: 20080425

REACTIONS (2)
  - MULTI-ORGAN FAILURE [None]
  - RASH MACULAR [None]
